FAERS Safety Report 26157666 (Version 1)
Quarter: 2025Q4

REPORT INFORMATION
  Report Type: Spontaneous
  Country: US (occurrence: None)
  Receive Date: 20251212
  Receipt Date: 20251212
  Transmission Date: 20260118
  Serious: No
  Sender: FDA-CTU
  Company Number: None

PATIENT

DRUGS (1)
  1. REPATHA [Suspect]
     Active Substance: EVOLOCUMAB

REACTIONS (14)
  - Nasopharyngitis [None]
  - Dry eye [None]
  - Dry mouth [None]
  - Dry throat [None]
  - Oropharyngeal pain [None]
  - Oropharyngeal pain [None]
  - Vision blurred [None]
  - Toothache [None]
  - Headache [None]
  - Myalgia [None]
  - Muscle spasms [None]
  - Lymphadenopathy [None]
  - Lymphadenitis [None]
  - Sinus operation [None]
